FAERS Safety Report 19338761 (Version 1)
Quarter: 2021Q2

REPORT INFORMATION
  Report Type: Spontaneous
  Country: US (occurrence: US)
  Receive Date: 20210530
  Receipt Date: 20210530
  Transmission Date: 20210717
  Serious: Yes (Hospitalization, Disabling)
  Sender: FDA-Public Use
  Company Number: US-PURDUE-USA-2020-0231915

PATIENT

DRUGS (1)
  1. OXYCONTIN [Suspect]
     Active Substance: OXYCODONE HYDROCHLORIDE
     Indication: PRODUCT USED FOR UNKNOWN INDICATION
     Dosage: UNK
     Route: 048

REACTIONS (7)
  - Emotional distress [Unknown]
  - Psychological trauma [Unknown]
  - Depression [Unknown]
  - Pain [Unknown]
  - Overdose [Unknown]
  - Injury [Unknown]
  - Anxiety [Unknown]
